FAERS Safety Report 4679788-0 (Version None)
Quarter: 2005Q2

REPORT INFORMATION
  Report Type: 
  Country: None (occurrence: None)
  Receive Date: 20050531
  Receipt Date: 20050517
  Transmission Date: 20051028
  Serious: Yes (Other)
  Sender: FDA-Public Use
  Company Number: 2005077290

PATIENT

DRUGS (4)
  1. HALCION [Suspect]
     Indication: ILL-DEFINED DISORDER
     Dosage: ORAL
     Route: 048
  2. LENDORM [Concomitant]
  3. RIZE (CLOTIAZEPAM) [Concomitant]
  4. BROTIZOLAM (BROTIZOLAM) [Concomitant]

REACTIONS (5)
  - BLOOD PRESSURE DECREASED [None]
  - CARDIAC FAILURE [None]
  - CONDITION AGGRAVATED [None]
  - CYANOSIS [None]
  - RESPIRATORY DEPRESSION [None]
